FAERS Safety Report 8063808-X (Version None)
Quarter: 2012Q1

REPORT INFORMATION
  Report Type: 
  Country: None (occurrence: None)
  Receive Date: 20120123
  Receipt Date: 20120112
  Transmission Date: 20120608
  Serious: Yes (Hospitalization, Disabling)
  Sender: FDA-Public Use
  Company Number: US-MERCK-1106USA01815

PATIENT
  Age: 56 Year
  Sex: Female

DRUGS (4)
  1. FOSAMAX [Suspect]
     Indication: OSTEOPOROSIS
     Route: 048
     Dates: start: 20020411, end: 20020101
  2. FOSAMAX [Suspect]
     Route: 048
     Dates: start: 20020812, end: 20060103
  3. FOSAMAX [Suspect]
     Indication: OSTEOPENIA
     Route: 048
     Dates: start: 20020411, end: 20020101
  4. FOSAMAX [Suspect]
     Route: 048
     Dates: start: 20020812, end: 20060103

REACTIONS (27)
  - MOOD DISORDER DUE TO A GENERAL MEDICAL CONDITION [None]
  - LEFT VENTRICULAR HYPERTROPHY [None]
  - HYPERLIPIDAEMIA [None]
  - ESSENTIAL HYPERTENSION [None]
  - CONTUSION [None]
  - BUNION [None]
  - BLOOD CHOLESTEROL INCREASED [None]
  - HYPOTENSION [None]
  - TEMPOROMANDIBULAR JOINT SYNDROME [None]
  - GAIT DISTURBANCE [None]
  - HAEMATOMA [None]
  - OSTEOARTHRITIS [None]
  - LIGAMENT DISORDER [None]
  - DENTAL CARIES [None]
  - FEAR [None]
  - FALL [None]
  - HYPERGLYCAEMIA [None]
  - FEMUR FRACTURE [None]
  - ANXIETY [None]
  - HYPERTENSION [None]
  - SPINAL DISORDER [None]
  - GASTROOESOPHAGEAL REFLUX DISEASE [None]
  - INJURY [None]
  - COCCYDYNIA [None]
  - ATRIOVENTRICULAR BLOCK FIRST DEGREE [None]
  - HYPOKALAEMIA [None]
  - DEPRESSION [None]
